FAERS Safety Report 19525946 (Version 2)
Quarter: 2021Q3

REPORT INFORMATION
  Report Type: Spontaneous
  Country: BE (occurrence: BE)
  Receive Date: 20210713
  Receipt Date: 20210816
  Transmission Date: 20211014
  Serious: Yes (Hospitalization)
  Sender: FDA-Public Use
  Company Number: BE-NOVOPROD-826518

PATIENT
  Age: 64 Year
  Sex: Female

DRUGS (21)
  1. ASAFLOW [Concomitant]
     Active Substance: ASPIRIN
     Dosage: 160 MG, QD
     Route: 065
  2. CETIRIZINE [Concomitant]
     Active Substance: CETIRIZINE HYDROCHLORIDE
     Dosage: 10 MG (IF NEEDED)
     Route: 065
  3. ALLOPURINOL. [Concomitant]
     Active Substance: ALLOPURINOL
     Dosage: 100 MG, QD
     Route: 065
  4. GABAPENTINE [Concomitant]
     Active Substance: GABAPENTIN
     Dosage: 100 MG, TID
     Route: 065
  5. VALTRAN [VALACICLOVIR HYDROCHLORIDE] [Concomitant]
     Dosage: UNK
     Route: 065
  6. TRESIBA [Suspect]
     Active Substance: INSULIN DEGLUDEC
     Indication: TYPE 2 DIABETES MELLITUS
     Dosage: 50 IU, QD
     Route: 065
  7. CEDOCARD [Concomitant]
     Active Substance: ISOSORBIDE DINITRATE
     Indication: HYPERTENSION
     Dosage: IF NEEDED (5 MG)
     Route: 065
  8. LOSARTAN. [Concomitant]
     Active Substance: LOSARTAN
     Indication: HYPERTENSION
     Dosage: 50 MG, QD
     Route: 065
  9. NEXIAM [ESOMEPRAZOLE MAGNESIUM] [Concomitant]
     Active Substance: ESOMEPRAZOLE MAGNESIUM
     Dosage: 40 MG, QD
     Route: 065
  10. SOLIFENACINE [SOLIFENACIN] [Concomitant]
     Active Substance: SOLIFENACIN
     Dosage: 5 MG, QD
     Route: 065
  11. DORMONOCT [Concomitant]
     Active Substance: LOPRAZOLAM
     Dosage: 2 MG, QD
     Route: 065
  12. MOTILIUM [Concomitant]
     Active Substance: DOMPERIDONE
     Dosage: 10 MG (IF NEEDED)
     Route: 065
  13. FENTANYL. [Concomitant]
     Active Substance: FENTANYL
     Dosage: 25 MCG ? 1X/3 DAYS
     Route: 065
  14. NOVORAPID [Suspect]
     Active Substance: INSULIN ASPART
     Indication: TYPE 2 DIABETES MELLITUS
     Dosage: 14 IU, QD
     Route: 065
  15. FULTIVIT D3 [Concomitant]
     Dosage: UNK
     Route: 065
  16. OZEMPIC [Suspect]
     Active Substance: SEMAGLUTIDE
     Indication: TYPE 2 DIABETES MELLITUS
     Dosage: 1.25 MG, QW
     Route: 065
  17. SIMVASTATINE [Concomitant]
     Active Substance: SIMVASTATIN
     Indication: LIPIDS ABNORMAL
     Dosage: 10 MG, QD
     Route: 065
  18. ALGOSTASE [Concomitant]
     Dosage: IF NEEDED
     Route: 065
  19. MINITRAN [Concomitant]
     Active Substance: NITROGLYCERIN
     Dosage: 5 MG, QD
     Route: 065
  20. SODIUM BICARBONATE. [Concomitant]
     Active Substance: SODIUM BICARBONATE
     Dosage: 1000 MG, QD
     Route: 065
  21. BISOPROLOL [Concomitant]
     Active Substance: BISOPROLOL
     Indication: HYPERTENSION
     Dosage: 1.25 MG, QD
     Route: 065

REACTIONS (7)
  - Nausea [Unknown]
  - Retching [Unknown]
  - Diarrhoea [Unknown]
  - Dehydration [Unknown]
  - Malaise [Unknown]
  - Hypoglycaemia [Unknown]
  - Urinary tract infection [Unknown]
